FAERS Safety Report 11850593 (Version 1)
Quarter: 2015Q4

REPORT INFORMATION
  Report Type: Spontaneous
  Country: US (occurrence: US)
  Receive Date: 20151218
  Receipt Date: 20151218
  Transmission Date: 20160305
  Serious: No
  Sender: FDA-Public Use
  Company Number: US-JNJFOC-20151202867

PATIENT
  Sex: Male

DRUGS (5)
  1. BABY ASPIRIN [Concomitant]
     Active Substance: ASPIRIN
     Indication: PRODUCT USED FOR UNKNOWN INDICATION
     Route: 065
  2. TYLENOL [Suspect]
     Active Substance: ACETAMINOPHEN
     Route: 065
  3. TYLENOL [Suspect]
     Active Substance: ACETAMINOPHEN
     Indication: PRODUCT USED FOR UNKNOWN INDICATION
     Route: 065
  4. SUTENT [Concomitant]
     Active Substance: SUNITINIB MALATE
     Indication: PRODUCT USED FOR UNKNOWN INDICATION
     Dosage: 28 DAYS ON/14 OFF, 1 MONTH, 3 DAYS
     Route: 065
     Dates: start: 20151030
  5. MULTI VITAMIN [Concomitant]
     Active Substance: VITAMINS
     Indication: PRODUCT USED FOR UNKNOWN INDICATION
     Route: 065

REACTIONS (3)
  - Insomnia [Unknown]
  - Yellow skin [Unknown]
  - Drug ineffective [Unknown]
